FAERS Safety Report 6547621-8 (Version None)
Quarter: 2010Q1

REPORT INFORMATION
  Report Type: 
  Country: None (occurrence: None)
  Receive Date: 20100122
  Receipt Date: 20100115
  Transmission Date: 20100710
  Serious: Yes (Hospitalization)
  Sender: FDA-Public Use
  Company Number: US-NAPPMUNDI-USA-2010-0041679

PATIENT
  Age: 74 Year
  Sex: Female

DRUGS (3)
  1. DILAUDID [Suspect]
     Indication: BACK PAIN
     Dosage: UNK
     Route: 048
     Dates: start: 20091224, end: 20100104
  2. PROZAC                             /00724401/ [Concomitant]
     Indication: DEPRESSION
     Dosage: UNK
     Route: 048
  3. ANTIHYPERTENSIVES [Concomitant]
     Indication: HYPERTENSION
     Route: 048

REACTIONS (11)
  - COGNITIVE DISORDER [None]
  - COMMUNICATION DISORDER [None]
  - CONFUSIONAL STATE [None]
  - CYSTITIS [None]
  - DECREASED ACTIVITY [None]
  - DEPRESSION [None]
  - DRUG INEFFECTIVE [None]
  - FALL [None]
  - INJURY [None]
  - PAIN [None]
  - SOMNOLENCE [None]
